FAERS Safety Report 4350306-X (Version None)
Quarter: 2004Q2

REPORT INFORMATION
  Report Type: 
  Country: None (occurrence: None)
  Receive Date: 20040429
  Receipt Date: 20040317
  Transmission Date: 20050107
  Serious: No
  Sender: FDA-Public Use
  Company Number: DE-MERCK-0403DEU00124

PATIENT
  Age: 14 Year
  Sex: Female
  Weight: 51 kg

DRUGS (2)
  1. VIOXX [Suspect]
     Indication: JUVENILE ARTHRITIS
     Route: 048
     Dates: start: 20031105, end: 20040316
  2. SULFASALAZINE [Concomitant]
     Route: 048
     Dates: start: 20030311

REACTIONS (2)
  - PRESCRIBED OVERDOSE [None]
  - PROTEINURIA [None]
